FAERS Safety Report 5858315-6 (Version None)
Quarter: 2008Q3

REPORT INFORMATION
  Report Type: 
  Country: None (occurrence: None)
  Receive Date: 20080826
  Receipt Date: 20080820
  Transmission Date: 20090109
  Serious: Yes (Other)
  Sender: FDA-Public Use
  Company Number: B0534341A

PATIENT
  Age: 21 Month
  Sex: Male

DRUGS (1)
  1. ZENTEL [Suspect]
     Indication: INFECTION PARASITIC
     Dosage: .4G PER DAY
     Route: 048
     Dates: start: 20080818, end: 20080818

REACTIONS (2)
  - FACE OEDEMA [None]
  - OCULAR HYPERAEMIA [None]
